FAERS Safety Report 4655445-1 (Version None)
Quarter: 2005Q2

REPORT INFORMATION
  Report Type: 
  Country: None (occurrence: None)
  Receive Date: 20050505
  Receipt Date: 20050418
  Transmission Date: 20051028
  Serious: Yes (Hospitalization, Other)
  Sender: FDA-Public Use
  Company Number: USA050495887

PATIENT
  Age: 77 Year
  Sex: Female

DRUGS (1)
  1. FORTEO [Suspect]
     Indication: OSTEOPOROSIS
     Dosage: 20 UG/ 1 DAY
     Dates: start: 20041001

REACTIONS (12)
  - ARTHRALGIA [None]
  - CARPAL TUNNEL SYNDROME [None]
  - FALL [None]
  - HAND FRACTURE [None]
  - HIP FRACTURE [None]
  - INJECTION SITE ERYTHEMA [None]
  - INJECTION SITE HAEMORRHAGE [None]
  - JOINT DISLOCATION [None]
  - JOINT INJURY [None]
  - PAIN [None]
  - PHARMACEUTICAL PRODUCT COMPLAINT [None]
  - SURGICAL PROCEDURE REPEATED [None]
